FAERS Safety Report 5328144-0 (Version None)
Quarter: 2007Q2

REPORT INFORMATION
  Report Type: 
  Country: None (occurrence: None)
  Receive Date: 20070514
  Receipt Date: 20070502
  Transmission Date: 20071010
  Serious: Yes (Other)
  Sender: FDA-Public Use
  Company Number: 07052106

PATIENT

DRUGS (1)
  1. PHENYTOIN SODIUM [Suspect]
     Dosage: ORAL
     Route: 048

REACTIONS (5)
  - CONDITION AGGRAVATED [None]
  - CONVULSION [None]
  - DRUG DOSE OMISSION [None]
  - HEADACHE [None]
  - TREATMENT NONCOMPLIANCE [None]
